FAERS Safety Report 20853006 (Version 4)
Quarter: 2022Q3

REPORT INFORMATION
  Report Type: Spontaneous
  Country: US (occurrence: US)
  Receive Date: 20220520
  Receipt Date: 20220713
  Transmission Date: 20221027
  Serious: No
  Sender: FDA-Public Use
  Company Number: US-UNITED THERAPEUTICS-UNT-2022-010642

PATIENT
  Sex: Female
  Weight: 49.887 kg

DRUGS (7)
  1. TYVASO [Suspect]
     Active Substance: TREPROSTINIL
     Indication: Pulmonary arterial hypertension
     Dosage: UNK
     Dates: start: 20220509
  2. TYVASO [Suspect]
     Active Substance: TREPROSTINIL
     Dosage: 18-72 ?G, QID
     Dates: start: 202205
  3. TYVASO [Suspect]
     Active Substance: TREPROSTINIL
     Dosage: 18 ?G, QID
     Dates: start: 202205
  4. TYVASO [Suspect]
     Active Substance: TREPROSTINIL
     Dosage: UNK
  5. TYVASO [Suspect]
     Active Substance: TREPROSTINIL
     Dosage: 24 ?G (PER SESSION)
     Dates: start: 2022
  6. TYVASO [Suspect]
     Active Substance: TREPROSTINIL
     Dosage: UNK (SLOW DOWN THE TITRATION)
     Dates: start: 2022
  7. LOSARTAN [Suspect]
     Active Substance: LOSARTAN
     Indication: Product used for unknown indication
     Dosage: UNK
     Route: 065
     Dates: end: 202205

REACTIONS (9)
  - Somnolence [Unknown]
  - Hypotension [Not Recovered/Not Resolved]
  - Weight increased [Unknown]
  - Oxygen saturation decreased [Unknown]
  - Fatigue [Not Recovered/Not Resolved]
  - Bronchospasm [Not Recovered/Not Resolved]
  - Lethargy [Unknown]
  - Oxygen consumption increased [Unknown]
  - Intentional dose omission [Unknown]

NARRATIVE: CASE EVENT DATE: 20220101
